FAERS Safety Report 11102406 (Version 1)
Quarter: 2015Q2

REPORT INFORMATION
  Report Type: Report from Study
  Country: US (occurrence: US)
  Receive Date: 20150511
  Receipt Date: 20150511
  Transmission Date: 20150821
  Serious: Yes (Life-Threatening, Disabling, Other)
  Sender: FDA-Public Use
  Company Number: US-ROCHE-1566886

PATIENT
  Age: 60 Year
  Sex: Female
  Weight: 56.75 kg

DRUGS (5)
  1. CARBOPLATIN. [Concomitant]
     Active Substance: CARBOPLATIN
     Route: 042
     Dates: start: 20140311, end: 20140812
  2. CARBOPLATIN. [Concomitant]
     Active Substance: CARBOPLATIN
     Indication: COLON CANCER
     Route: 042
     Dates: start: 201404, end: 201411
  3. AVASTIN [Suspect]
     Active Substance: BEVACIZUMAB
     Indication: COLON CANCER
     Route: 042
     Dates: start: 20140422, end: 20141105
  4. DOXIL [Concomitant]
     Active Substance: DOXORUBICIN HYDROCHLORIDE
     Indication: COLON CANCER
     Dosage: 2 WEEKS AFTER AVASTIN/CARBOPLATIN INFUSIONS
     Route: 042
     Dates: start: 201404, end: 201411
  5. DOXIL [Concomitant]
     Active Substance: DOXORUBICIN HYDROCHLORIDE
     Route: 042
     Dates: start: 20140311, end: 20141218

REACTIONS (7)
  - Migraine [Recovered/Resolved]
  - Protein urine present [Not Recovered/Not Resolved]
  - Proteinuria [Not Recovered/Not Resolved]
  - Nephrotic syndrome [Not Recovered/Not Resolved]
  - Renal failure [Not Recovered/Not Resolved]
  - Hypertension [Unknown]
  - Anaemia [Not Recovered/Not Resolved]

NARRATIVE: CASE EVENT DATE: 201411
